FAERS Safety Report 4406477-X (Version None)
Quarter: 2004Q3

REPORT INFORMATION
  Report Type: 
  Country: None (occurrence: None)
  Receive Date: 20040715
  Receipt Date: 20040706
  Transmission Date: 20050211
  Serious: Yes (Life-Threatening, Hospitalization, Disabling, Other)
  Sender: FDA-Public Use
  Company Number: 2004-07-0374

PATIENT
  Age: 32 Year
  Sex: Male

DRUGS (4)
  1. TRILAFON [Suspect]
     Indication: DELUSIONAL DISORDER, PERSECUTORY TYPE
     Dosage: 24 MG QD ORAL
     Route: 048
  2. ALCOHOL [Suspect]
  3. ZYPREXA [Concomitant]
  4. CISORDINOL [Concomitant]

REACTIONS (14)
  - ALCOHOL USE [None]
  - CARDIAC DISORDER [None]
  - DELUSION [None]
  - DIAPHRAGMATIC PARALYSIS [None]
  - DYSPNOEA [None]
  - FATIGUE [None]
  - MUSCULAR WEAKNESS [None]
  - MUSCULOSKELETAL STIFFNESS [None]
  - NAUSEA [None]
  - NIGHTMARE [None]
  - OPHTHALMOPLEGIA [None]
  - QRS AXIS ABNORMAL [None]
  - TOOTH DISCOLOURATION [None]
  - VOMITING [None]
